FAERS Safety Report 23590058 (Version 1)
Quarter: 2024Q1

REPORT INFORMATION
  Report Type: Report from Study
  Country: IT (occurrence: IT)
  Receive Date: 20240304
  Receipt Date: 20240304
  Transmission Date: 20240409
  Serious: Yes (Other)
  Sender: FDA-Public Use
  Company Number: IT-RECORDATI RARE DISEASE INC.-2024001380

PATIENT

DRUGS (3)
  1. PASIREOTIDE [Suspect]
     Active Substance: PASIREOTIDE
     Indication: Acromegaly
     Dosage: 40 MG EVERY 28 DAYS
     Route: 030
  2. PASIREOTIDE [Suspect]
     Active Substance: PASIREOTIDE
     Dosage: TITRATED TO 60 MG
     Route: 030
  3. PASIREOTIDE [Suspect]
     Active Substance: PASIREOTIDE
     Dosage: DECREASED TO 20 MG
     Route: 030

REACTIONS (1)
  - Diabetes mellitus inadequate control [Unknown]
